FAERS Safety Report 14849049 (Version 2)
Quarter: 2018Q2

REPORT INFORMATION
  Report Type: Report from Study
  Country: None (occurrence: IT)
  Receive Date: 20180504
  Receipt Date: 20180619
  Transmission Date: 20180711
  Serious: Yes (Hospitalization)
  Sender: FDA-Public Use
  Company Number: IT-BAUSCH-BL-2018-012575

PATIENT
  Age: 62 Year
  Sex: Female

DRUGS (8)
  1. LORAZEPAM. [Suspect]
     Active Substance: LORAZEPAM
     Indication: ANXIETY
     Dosage: 10 DOSAGE FORMS IN TOTAL
     Route: 065
     Dates: start: 20180411, end: 20180411
  2. FLUVOXAMINA EG [Concomitant]
     Indication: DEPRESSION
     Dosage: 2 DOSAGE FORMS
     Route: 048
     Dates: start: 20150101
  3. OLANZAPINA ACTAVIS PTC [Concomitant]
     Indication: PSYCHOTIC DISORDER
     Route: 048
     Dates: start: 20150101
  4. LEVOPRAID [Concomitant]
     Indication: ANXIETY
     Route: 048
     Dates: start: 20150101
  5. FLURAZEPAM [Concomitant]
     Active Substance: FLURAZEPAM\FLURAZEPAM HYDROCHLORIDE
     Indication: ANXIETY
     Dosage: RIGID CAPSULE
     Route: 048
     Dates: start: 20150101
  6. ALPRAZOLAM ABC [Concomitant]
     Indication: ANXIETY
     Route: 048
     Dates: start: 20150101
  7. TRITTICO [Suspect]
     Active Substance: TRAZODONE HYDROCHLORIDE
     Indication: SEDATION
     Dosage: 10 DOSAGE FORMS IN TOTAL
     Route: 048
     Dates: start: 20180411, end: 20180411
  8. QUETIAPINA TEVA [Suspect]
     Active Substance: QUETIAPINE
     Indication: PSYCHOTIC DISORDER
     Dosage: 10 DOSAGE FORMS IN TOTAL
     Route: 048
     Dates: start: 20180411, end: 20180411

REACTIONS (2)
  - Sopor [Recovered/Resolved]
  - Drug abuse [Recovered/Resolved]

NARRATIVE: CASE EVENT DATE: 20180411
